FAERS Safety Report 5952499-7 (Version None)
Quarter: 2008Q4

REPORT INFORMATION
  Report Type: 
  Country: None (occurrence: None)
  Receive Date: 20081113
  Receipt Date: 20081105
  Transmission Date: 20090506
  Serious: Yes (Hospitalization)
  Sender: FDA-Public Use
  Company Number: BR-ABBOTT-08P-020-0486193-00

PATIENT
  Sex: Female

DRUGS (1)
  1. DEPAKOTE [Suspect]
     Indication: CONVULSION PROPHYLAXIS
     Route: 048
     Dates: end: 20081017

REACTIONS (9)
  - ASTHENIA [None]
  - FEAR [None]
  - HYPOPHAGIA [None]
  - ILL-DEFINED DISORDER [None]
  - IRRITABILITY [None]
  - PHOBIA [None]
  - SLEEP DISORDER [None]
  - TRANSAMINASES INCREASED [None]
  - URINARY TRACT INFECTION [None]
